FAERS Safety Report 5045372-2 (Version None)
Quarter: 2006Q3

REPORT INFORMATION
  Report Type: 
  Country: None (occurrence: None)
  Receive Date: 20060707
  Receipt Date: 20001129
  Transmission Date: 20061208
  Serious: No
  Sender: FDA-Public Use
  Company Number: US-GLAXOSMITHKLINE-A0133303A

PATIENT
  Age: 66 Year
  Sex: Female

DRUGS (1)
  1. LOTRONEX [Suspect]
     Indication: IRRITABLE BOWEL SYNDROME
     Dosage: 1MG ALTERNATE DAYS
     Route: 048
     Dates: start: 20000914, end: 20001127

REACTIONS (7)
  - ANOREXIA [None]
  - ANXIETY [None]
  - ASTHENIA [None]
  - DEPRESSION [None]
  - GASTROINTESTINAL INJURY [None]
  - NERVOUSNESS [None]
  - WEIGHT DECREASED [None]
